FAERS Safety Report 16465804 (Version 1)
Quarter: 2019Q2

REPORT INFORMATION
  Report Type: Spontaneous
  Country: FR (occurrence: FR)
  Receive Date: 20190621
  Receipt Date: 20190621
  Transmission Date: 20190711
  Serious: Yes (Death)
  Sender: FDA-Public Use
  Company Number: FR-ANIPHARMA-2019-FR-000147

PATIENT
  Age: 53 Year
  Sex: Male

DRUGS (10)
  1. EUPRESSYL [Suspect]
     Active Substance: URAPIDIL
     Dosage: 90 MG ONCE
     Route: 048
     Dates: start: 20140530, end: 20140530
  2. PAROXETINE. [Concomitant]
     Active Substance: PAROXETINE
     Dosage: 20 MG ONCE
     Route: 065
     Dates: start: 20140530, end: 20140530
  3. DUPHALAC [Concomitant]
     Active Substance: LACTULOSE
     Dosage: 40 MG BID
     Route: 065
  4. NOVONORM [Suspect]
     Active Substance: REPAGLINIDE
     Dosage: 2 MG ONCE
     Route: 048
     Dates: start: 20140530, end: 20140530
  5. ATACAND [Suspect]
     Active Substance: CANDESARTAN CILEXETIL
     Indication: PRODUCT USED FOR UNKNOWN INDICATION
     Dosage: 16 MG ONCE
     Route: 048
     Dates: start: 20140530, end: 20140530
  6. AVLOCARDYL [Concomitant]
     Active Substance: PROPRANOLOL HYDROCHLORIDE
     Dosage: 40 MG BID / 40 MG QD
     Route: 065
     Dates: start: 20140528, end: 20140529
  7. HYDROCORTISONE. [Concomitant]
     Active Substance: HYDROCORTISONE
     Dosage: 15 MG ONCE
     Route: 065
     Dates: start: 20140530, end: 20140530
  8. DIFFU K [Concomitant]
     Active Substance: POTASSIUM CHLORIDE
     Dosage: 1 DF ONCE
     Route: 065
     Dates: start: 20140530, end: 20140530
  9. ISOPTINE [Suspect]
     Active Substance: VERAPAMIL HYDROCHLORIDE
     Dosage: 240 MG ONCE
     Route: 048
     Dates: start: 20140530, end: 20140530
  10. VITAMIN B1 AND B6 [Concomitant]
     Active Substance: PYRIDOXINE HYDROCHLORIDE\THIAMINE HYDROCHLORIDE
     Dosage: UNK
     Route: 065

REACTIONS (4)
  - Death [Fatal]
  - Hypotension [Fatal]
  - Hypoglycaemia [Fatal]
  - Bradycardia [Fatal]

NARRATIVE: CASE EVENT DATE: 20140530
